FAERS Safety Report 6872411-6 (Version None)
Quarter: 2010Q3

REPORT INFORMATION
  Report Type: 
  Country: None (occurrence: None)
  Receive Date: 20100723
  Receipt Date: 20081119
  Transmission Date: 20110219
  Serious: Yes (Hospitalization, Other)
  Sender: FDA-Public Use
  Company Number: US-PFIZER INC-2008080298

PATIENT
  Sex: Female
  Weight: 110.45 kg

DRUGS (3)
  1. CHANTIX [Suspect]
     Indication: SMOKING CESSATION THERAPY
     Dates: start: 20080901, end: 20080901
  2. LISINOPRIL [Concomitant]
  3. XANAX [Concomitant]

REACTIONS (6)
  - BALANCE DISORDER [None]
  - BRADYPHRENIA [None]
  - DIZZINESS [None]
  - GRAND MAL CONVULSION [None]
  - INSOMNIA [None]
  - SOMNOLENCE [None]
